FAERS Safety Report 5313630-X (Version None)
Quarter: 2007Q1

REPORT INFORMATION
  Report Type: 
  Country: None (occurrence: None)
  Receive Date: 20070130
  Receipt Date: 20060530
  Transmission Date: 20070707
  Serious: Yes (Other)
  Sender: FDA-Public Use
  Company Number: 145727USA

PATIENT
  Age: 38 Year
  Sex: Female

DRUGS (4)
  1. COPAXONE [Suspect]
     Indication: MULTIPLE SCLEROSIS
     Dosage: 20 MG (20 MG, ONCE A DAY), SUBCUTANEOUS
     Route: 058
     Dates: start: 20060328
  2. OXAPROZIN [Concomitant]
  3. OMEPRAZOLE [Concomitant]
  4. CODEINE SUL TAB [Concomitant]

REACTIONS (1)
  - LUNG NEOPLASM MALIGNANT [None]
